FAERS Safety Report 22100228 (Version 3)
Quarter: 2023Q1

REPORT INFORMATION
  Report Type: Spontaneous
  Country: US (occurrence: US)
  Receive Date: 20230315
  Receipt Date: 20230321
  Transmission Date: 20230417
  Serious: Yes (Other)
  Sender: FDA-Public Use
  Company Number: US-JNJFOC-20230330936

PATIENT
  Age: 45 Year
  Sex: Female

DRUGS (5)
  1. YONDELIS [Suspect]
     Active Substance: TRABECTEDIN
     Indication: Product used for unknown indication
     Route: 065
  2. ZYRTEC [Concomitant]
     Active Substance: CETIRIZINE HYDROCHLORIDE
  3. UDENYCA [Concomitant]
     Active Substance: PEGFILGRASTIM-CBQV
     Indication: Prophylaxis
  4. OPDIVO [Concomitant]
     Active Substance: NIVOLUMAB
     Indication: Immunosuppressant drug therapy
  5. YERVOY [Concomitant]
     Active Substance: IPILIMUMAB
     Indication: Immunosuppressant drug therapy

REACTIONS (2)
  - Choking [Unknown]
  - Headache [Unknown]
